FAERS Safety Report 14719486 (Version 1)
Quarter: 2018Q1

REPORT INFORMATION
  Report Type: Spontaneous
  Country: US (occurrence: US)
  Receive Date: 20180330
  Receipt Date: 20180330
  Transmission Date: 20180509
  Serious: No
  Sender: FDA-Public Use
  Company Number: None

PATIENT
  Sex: Female

DRUGS (1)
  1. PRASUGREL. [Suspect]
     Active Substance: PRASUGREL

REACTIONS (3)
  - Back pain [None]
  - Headache [None]
  - Dysphagia [None]
